FAERS Safety Report 18565343 (Version 2)
Quarter: 2021Q1

REPORT INFORMATION
  Report Type: Spontaneous
  Country: JP (occurrence: JP)
  Receive Date: 20201201
  Receipt Date: 20210322
  Transmission Date: 20210419
  Serious: No
  Sender: FDA-Public Use
  Company Number: JP-ELI_LILLY_AND_COMPANY-JP202011012506

PATIENT
  Age: 64 Year
  Sex: Female

DRUGS (5)
  1. DULOXETINE HYDROCHLORIDE. [Suspect]
     Active Substance: DULOXETINE HYDROCHLORIDE
     Dosage: 60 MG, DAILY
     Route: 048
     Dates: start: 20201006, end: 20201029
  2. METHYCOBAL [Concomitant]
     Active Substance: METHYLCOBALAMIN
     Indication: PERIPHERAL VASCULAR DISORDER
     Dosage: 0.5 MG, TID
     Route: 048
  3. EPADEL T [Concomitant]
     Active Substance: ICOSAPENT ETHYL
     Indication: PERIPHERAL VASCULAR DISORDER
     Dosage: 600 MG, TID
     Route: 048
     Dates: start: 20180219
  4. DULOXETINE HYDROCHLORIDE. [Suspect]
     Active Substance: DULOXETINE HYDROCHLORIDE
     Indication: BACK PAIN
     Dosage: 20 MG, DAILY
     Route: 048
     Dates: start: 20200908, end: 20200922
  5. DULOXETINE HYDROCHLORIDE. [Suspect]
     Active Substance: DULOXETINE HYDROCHLORIDE
     Indication: OSTEOARTHRITIS
     Dosage: 40 MG, DAILY
     Route: 048
     Dates: start: 20200923, end: 20201005

REACTIONS (8)
  - Arrhythmia [Unknown]
  - Hepatic function abnormal [Recovered/Resolved]
  - Back pain [Unknown]
  - Nausea [Unknown]
  - Constipation [Unknown]
  - Feeling cold [Unknown]
  - Pain [Unknown]
  - Pallor [Unknown]

NARRATIVE: CASE EVENT DATE: 2020
